FAERS Safety Report 15696250 (Version 1)
Quarter: 2018Q4

REPORT INFORMATION
  Report Type: Spontaneous
  Country: US (occurrence: US)
  Receive Date: 20181206
  Receipt Date: 20181206
  Transmission Date: 20190205
  Serious: Yes (Other)
  Sender: FDA-Public Use
  Company Number: US-THE MENTHOLATUM COMPANY-2059795

PATIENT
  Age: 40 Year
  Sex: Male
  Weight: 111.36 kg

DRUGS (1)
  1. EQUATE CAPSAICIN PAIN RELIEVING [Suspect]
     Active Substance: CAPSAICIN
     Indication: MYALGIA
     Route: 061
     Dates: start: 20181113, end: 20181113

REACTIONS (2)
  - Application site burn [Unknown]
  - Scar [Not Recovered/Not Resolved]

NARRATIVE: CASE EVENT DATE: 20181113
